FAERS Safety Report 25033426 (Version 1)
Quarter: 2025Q1

REPORT INFORMATION
  Report Type: Spontaneous
  Country: US (occurrence: US)
  Receive Date: 20250303
  Receipt Date: 20250303
  Transmission Date: 20250409
  Serious: Yes (Other)
  Sender: SANOFI AVENTIS
  Company Number: US-SA-2025SA057477

PATIENT
  Sex: Female

DRUGS (1)
  1. AUBAGIO [Suspect]
     Active Substance: TERIFLUNOMIDE
     Indication: Multiple sclerosis
     Dosage: 14 MG, QD

REACTIONS (14)
  - Pyelonephritis [Unknown]
  - Illness [Unknown]
  - Constipation [Unknown]
  - Cognitive disorder [Not Recovered/Not Resolved]
  - Aphasia [Not Recovered/Not Resolved]
  - Fatigue [Unknown]
  - Balance disorder [Not Recovered/Not Resolved]
  - Muscular weakness [Not Recovered/Not Resolved]
  - Sleep disorder due to a general medical condition [Unknown]
  - Fall [Unknown]
  - Memory impairment [Unknown]
  - Burning sensation [Unknown]
  - Hypoaesthesia [Not Recovered/Not Resolved]
  - Paraesthesia [Not Recovered/Not Resolved]

NARRATIVE: CASE EVENT DATE: 20250201
